FAERS Safety Report 6675536-3 (Version None)
Quarter: 2010Q2

REPORT INFORMATION
  Report Type: 
  Country: None (occurrence: None)
  Receive Date: 20100409
  Receipt Date: 20100406
  Transmission Date: 20101027
  Serious: Yes (Other)
  Sender: FDA-Public Use
  Company Number: US-BAYER-201013965BCC

PATIENT
  Age: 46 Year
  Sex: Female

DRUGS (2)
  1. MIDOL [Suspect]
     Indication: DRUG USE FOR UNKNOWN INDICATION
     Dosage: BOTTLE COUNT 24S
     Route: 048
  2. ZYRTEC [Concomitant]
     Indication: SEASONAL ALLERGY
     Route: 065

REACTIONS (7)
  - ERYTHEMA [None]
  - FEELING ABNORMAL [None]
  - FEELING HOT [None]
  - HYPERSENSITIVITY [None]
  - SWOLLEN TONGUE [None]
  - UTERINE SPASM [None]
  - WHEEZING [None]
